FAERS Safety Report 11130667 (Version 1)
Quarter: 2015Q2

REPORT INFORMATION
  Report Type: Spontaneous
  Country: US (occurrence: US)
  Receive Date: 20150522
  Receipt Date: 20150522
  Transmission Date: 20150821
  Serious: No
  Sender: FDA-Public Use
  Company Number: US-JNJFOC-20150502013

PATIENT
  Age: 18 Year
  Sex: Male
  Weight: 74.84 kg

DRUGS (3)
  1. INVEGA SUSTENNA [Suspect]
     Active Substance: PALIPERIDONE PALMITATE
     Indication: SCHIZOPHRENIA
     Route: 030
     Dates: start: 201503, end: 201503
  2. INVEGA SUSTENNA [Suspect]
     Active Substance: PALIPERIDONE PALMITATE
     Indication: SCHIZOPHRENIA
     Route: 030
     Dates: start: 201503, end: 201504
  3. INVEGA SUSTENNA [Suspect]
     Active Substance: PALIPERIDONE PALMITATE
     Indication: SCHIZOPHRENIA
     Route: 030
     Dates: start: 201504

REACTIONS (6)
  - Sexual dysfunction [Not Recovered/Not Resolved]
  - Myalgia [Not Recovered/Not Resolved]
  - Restlessness [Recovering/Resolving]
  - Flat affect [Not Recovered/Not Resolved]
  - Loss of libido [Not Recovered/Not Resolved]
  - Ejaculation failure [Not Recovered/Not Resolved]

NARRATIVE: CASE EVENT DATE: 201503
